FAERS Safety Report 13863702 (Version 1)
Quarter: 2017Q3

REPORT INFORMATION
  Report Type: Spontaneous
  Country: CZ (occurrence: CZ)
  Receive Date: 20170814
  Receipt Date: 20170814
  Transmission Date: 20171127
  Serious: Yes (Hospitalization, Other)
  Sender: FDA-Public Use
  Company Number: PHHY2017CZ117248

PATIENT
  Sex: Female

DRUGS (2)
  1. PREDNISOLON [Concomitant]
     Active Substance: PREDNISOLONE
     Indication: POLYCHONDRITIS
     Dosage: 5-60 MG, UNK
     Route: 062
  2. MYCOPHENOLIC ACID. [Suspect]
     Active Substance: MYCOPHENOLIC ACID
     Indication: POLYCHONDRITIS
     Dosage: 250-1000 MG, UNK
     Route: 065

REACTIONS (6)
  - Haemothorax [Unknown]
  - Fungal sepsis [Unknown]
  - Intestinal haemorrhage [Unknown]
  - Drug ineffective [Unknown]
  - Product use in unapproved indication [Unknown]
  - Supraventricular tachyarrhythmia [Unknown]
